FAERS Safety Report 17223513 (Version 1)
Quarter: 2020Q1

REPORT INFORMATION
  Report Type: Spontaneous
  Country: DE (occurrence: DE)
  Receive Date: 20200102
  Receipt Date: 20200102
  Transmission Date: 20200409
  Serious: Yes (Hospitalization)
  Sender: FDA-Public Use
  Company Number: DE-TEVA-2019-DE-1160189

PATIENT
  Age: 49 Year
  Sex: Female
  Weight: 104 kg

DRUGS (8)
  1. CANDESARTAN. [Suspect]
     Active Substance: CANDESARTAN
     Dosage: 8 MG, 1-0-0-0
  2. VENLAFAXINE [Suspect]
     Active Substance: VENLAFAXINE HYDROCHLORIDE
     Dosage: 75 MILLIGRAM DAILY; 75 MG, 1-0-0-0
  3. PANTOPRAZOL [Concomitant]
     Active Substance: PANTOPRAZOLE SODIUM
     Dosage: 40 MG / 2 DAYS, 1-0-0-0
  4. LERCANIDIPINE [Suspect]
     Active Substance: LERCANIDIPINE
     Dosage: 20 MILLIGRAM DAILY; 20 MG, 1-0-0-0
  5. METFORMIN [Concomitant]
     Active Substance: METFORMIN HYDROCHLORIDE
     Dosage: 2000 MILLIGRAM DAILY; 500 MG, 2-0-2-0
  6. BISOPROLOL [Suspect]
     Active Substance: BISOPROLOL
     Dosage: 10 MILLIGRAM DAILY; 5 MG, 1-0-1-0
  7. HCT [Suspect]
     Active Substance: HYDROCHLOROTHIAZIDE
     Dosage: 12.5 MG, 1-0-0-0
  8. SIMVASTATIN. [Concomitant]
     Active Substance: SIMVASTATIN
     Dosage: 40 MILLIGRAM DAILY; 20 MG, 0-0-2-0

REACTIONS (4)
  - Cold sweat [Unknown]
  - Malaise [Unknown]
  - General physical health deterioration [Unknown]
  - Syncope [Unknown]
